FAERS Safety Report 25811084 (Version 1)
Quarter: 2025Q3

REPORT INFORMATION
  Report Type: Spontaneous
  Country: JP (occurrence: JP)
  Receive Date: 20250917
  Receipt Date: 20250917
  Transmission Date: 20251020
  Serious: Yes (Hospitalization, Other)
  Sender: GLAND PHARMA LTD
  Company Number: JP-GLANDPHARMA-JP-2025GLNLIT01842

PATIENT
  Age: 63 Year
  Sex: Female

DRUGS (13)
  1. MELPHALAN HYDROCHLORIDE [Suspect]
     Active Substance: MELPHALAN HYDROCHLORIDE
     Indication: Myelodysplastic syndrome
     Route: 065
  2. FLUDARABINE [Suspect]
     Active Substance: FLUDARABINE PHOSPHATE
     Indication: Myelodysplastic syndrome
     Route: 065
  3. TACROLIMUS [Suspect]
     Active Substance: TACROLIMUS
     Indication: Prophylaxis against graft versus host disease
     Route: 065
  4. METHOTREXATE [Suspect]
     Active Substance: METHOTREXATE
     Indication: Prophylaxis against graft versus host disease
     Route: 065
  5. MYCOPHENOLATE MOFETIL [Suspect]
     Active Substance: MYCOPHENOLATE MOFETIL
     Indication: Lung disorder
     Route: 065
  6. METHYLPREDNISOLONE [Suspect]
     Active Substance: METHYLPREDNISOLONE
     Indication: Lung disorder
     Route: 065
  7. RUXOLITINIB [Suspect]
     Active Substance: RUXOLITINIB
     Indication: Lung disorder
     Route: 065
  8. PREDNISOLONE [Suspect]
     Active Substance: PREDNISOLONE
     Indication: Pneumonia
     Route: 048
  9. THYMOCYTE IMMUNE GLOBULIN NOS [Suspect]
     Active Substance: THYMOCYTE IMMUNE GLOBULIN NOS
     Indication: Immunosuppression
     Route: 065
  10. AZACITIDINE [Concomitant]
     Active Substance: AZACITIDINE
     Route: 065
  11. VENETOCLAX [Concomitant]
     Active Substance: VENETOCLAX
     Route: 065
  12. IDARUBICIN [Concomitant]
     Active Substance: IDARUBICIN
     Route: 065
  13. CYTARABINE [Concomitant]
     Active Substance: CYTARABINE
     Route: 065

REACTIONS (5)
  - Encephalitis enteroviral [Unknown]
  - Respiratory failure [Unknown]
  - Brain stem syndrome [Unknown]
  - Paralysis [Unknown]
  - Product use in unapproved indication [Unknown]
